FAERS Safety Report 8406839-X (Version None)
Quarter: 2012Q2

REPORT INFORMATION
  Report Type: 
  Country: None (occurrence: None)
  Receive Date: 20120529
  Receipt Date: 20050111
  Transmission Date: 20120825
  Serious: Yes (Death, Hospitalization)
  Sender: FDA-Public Use
  Company Number: 02100-JPN-04-0317

PATIENT
  Age: 64 Year
  Sex: Male

DRUGS (1)
  1. PLETAL [Suspect]
     Indication: LACUNAR INFARCTION
     Dosage: 100 MG, BID, ORAL
     Route: 048
     Dates: start: 20031022, end: 20040628

REACTIONS (8)
  - GASTRIC CANCER [None]
  - MALIGNANT ASCITES [None]
  - PLATELET COUNT INCREASED [None]
  - ANAEMIA [None]
  - JOINT CONTRACTURE [None]
  - MUSCULOSKELETAL PAIN [None]
  - GENERAL PHYSICAL HEALTH DETERIORATION [None]
  - RED BLOOD CELL ABNORMALITY [None]
